FAERS Safety Report 9651860 (Version 4)
Quarter: 2014Q1

REPORT INFORMATION
  Report Type: Report from Study
  Country: CA (occurrence: CA)
  Receive Date: 20131029
  Receipt Date: 20140213
  Transmission Date: 20141002
  Serious: Yes (Other)
  Sender: FDA-Public Use
  Company Number: CA-JNJFOC-20130306874

PATIENT
  Sex: Male
  Weight: 72.4 kg

DRUGS (6)
  1. REMICADE [Suspect]
     Indication: COLITIS ULCERATIVE
     Route: 042
     Dates: start: 20111013
  2. REMICADE [Suspect]
     Indication: CROHN^S DISEASE
     Route: 042
     Dates: start: 20111013
  3. TRAMADOL [Concomitant]
     Route: 065
  4. OXYCODONE [Concomitant]
     Dosage: SELDOM
     Route: 065
  5. CANNABIS [Concomitant]
     Dosage: FREQUENCY: DAILY
     Route: 065
  6. PREDNISONE [Concomitant]
     Route: 065

REACTIONS (3)
  - Pharyngitis [Not Recovered/Not Resolved]
  - Tonsillitis [Unknown]
  - Mass [Unknown]
